FAERS Safety Report 13698985 (Version 2)
Quarter: 2017Q2

REPORT INFORMATION
  Report Type: Report from Study
  Country: KR (occurrence: KR)
  Receive Date: 20170628
  Receipt Date: 20170630
  Transmission Date: 20170830
  Serious: Yes (Hospitalization)
  Sender: FDA-Public Use
  Company Number: KR-BAYER-2017-118754

PATIENT
  Age: 30 Year
  Sex: Male

DRUGS (1)
  1. BETAFERON [Suspect]
     Active Substance: INTERFERON BETA-1B
     Indication: MULTIPLE SCLEROSIS
     Dosage: UNK UNK, QOD
     Route: 058
     Dates: start: 20160202

REACTIONS (4)
  - Inflammation [None]
  - Peripheral swelling [Not Recovered/Not Resolved]
  - Pain in extremity [Not Recovered/Not Resolved]
  - Gait disturbance [Not Recovered/Not Resolved]
